FAERS Safety Report 17718668 (Version 1)
Quarter: 2020Q2

REPORT INFORMATION
  Report Type: Spontaneous
  Country: US (occurrence: US)
  Receive Date: 20200428
  Receipt Date: 20200428
  Transmission Date: 20200714
  Serious: Yes (Hospitalization)
  Sender: FDA-Public Use
  Company Number: None

PATIENT
  Age: 65 Year
  Sex: Male

DRUGS (1)
  1. CYCLOPHOSPHAMIDE 50MG ROXANE [Suspect]
     Active Substance: CYCLOPHOSPHAMIDE
     Indication: NEPHRITIC SYNDROME
     Route: 048
     Dates: start: 20200123

REACTIONS (4)
  - Fluid retention [None]
  - Respiratory rate increased [None]
  - Pyrexia [None]
  - Night sweats [None]

NARRATIVE: CASE EVENT DATE: 20200328
